FAERS Safety Report 9407760 (Version 1)
Quarter: 2013Q3

REPORT INFORMATION
  Report Type: Report from Study
  Country: US (occurrence: US)
  Receive Date: 20130718
  Receipt Date: 20130718
  Transmission Date: 20140515
  Serious: Yes (Hospitalization)
  Sender: FDA-Public Use
  Company Number: US-ACTELION-A-US2013-85810

PATIENT
  Age: 64 Year
  Sex: Female

DRUGS (1)
  1. TRACLEER [Suspect]
     Indication: CARDIAC SEPTAL DEFECT
     Dosage: UNK
     Route: 048

REACTIONS (3)
  - Pulmonary oedema [Unknown]
  - Influenza [Unknown]
  - Respiratory tract congestion [Unknown]
